FAERS Safety Report 13300950 (Version 1)
Quarter: 2017Q1

REPORT INFORMATION
  Report Type: Spontaneous
  Country: US (occurrence: US)
  Receive Date: 20170307
  Receipt Date: 20170307
  Transmission Date: 20170428
  Serious: Yes (Other)
  Sender: FDA-Public Use
  Company Number: US-TEVA-745452USA

PATIENT
  Age: 31 Year
  Sex: Female

DRUGS (23)
  1. BACLOFEN. [Suspect]
     Active Substance: BACLOFEN
     Indication: PRODUCT USED FOR UNKNOWN INDICATION
     Dosage: 15 MILLIGRAM DAILY;
     Route: 048
     Dates: start: 20150613
  2. LEVETIRACETAM. [Suspect]
     Active Substance: LEVETIRACETAM
     Indication: PRODUCT USED FOR UNKNOWN INDICATION
     Route: 065
     Dates: start: 201611
  3. JOLLVETTE-28 [Concomitant]
  4. TOPIRAMATE. [Concomitant]
     Active Substance: TOPIRAMATE
     Dates: start: 20160111
  5. SUMATRIPTAN. [Concomitant]
     Active Substance: SUMATRIPTAN
  6. TRAMADOL. [Concomitant]
     Active Substance: TRAMADOL
  7. TINAZIDINE [Suspect]
     Active Substance: TIZANIDINE
     Route: 065
  8. NITROFURANTOIN MONOHYDRATE MACROCRYSTALS [Concomitant]
     Active Substance: NITROFURANTOIN\NITROFURANTOIN MONOHYDRATE
     Dates: start: 20160111
  9. CAMBIA [Concomitant]
     Active Substance: DICLOFENAC POTASSIUM
  10. CARBAMAZEPINE. [Suspect]
     Active Substance: CARBAMAZEPINE
     Indication: PRODUCT USED FOR UNKNOWN INDICATION
     Route: 065
  11. CYMBALTA [Concomitant]
     Active Substance: DULOXETINE HYDROCHLORIDE
  12. OXYCODONE AND ACETAMINOPHEN [Concomitant]
     Active Substance: ACETAMINOPHEN\OXYCODONE HYDROCHLORIDE
     Dosage: 10-325 MG
     Dates: start: 20151030
  13. LYRICA [Concomitant]
     Active Substance: PREGABALIN
  14. PROMETHAZINE [Concomitant]
     Active Substance: PROMETHAZINE\PROMETHAZINE HYDROCHLORIDE
     Dates: start: 20151030
  15. NAPROXEN SODIUM. [Concomitant]
     Active Substance: NAPROXEN SODIUM
     Dates: start: 201604
  16. DULOXETINE. [Concomitant]
     Active Substance: DULOXETINE
     Dates: start: 20161017
  17. LOMOTIL [Concomitant]
     Active Substance: ATROPINE SULFATE\DIPHENOXYLATE HYDROCHLORIDE
     Dosage: 2.5-0.025 MG
  18. OXCARBAZEPLNE (OXCARBAZEPINE) [Concomitant]
     Dates: start: 20160301
  19. SUMATRIPTAN SUCCINATE. [Concomitant]
     Active Substance: SUMATRIPTAN SUCCINATE
     Dates: start: 20160127
  20. BUTALBITAL, ACETAMINOPHEN, AND CAFFEINE [Concomitant]
     Active Substance: ACETAMINOPHEN\BUTALBITAL\CAFFEINE
     Dosage: 50-325-40MG
     Dates: start: 20160915
  21. DIPHENOXYLATE HYDROCHLORIDE AND ATROPINE SULFATE [Concomitant]
     Active Substance: ATROPINE SULFATE\DIPHENOXYLATE HYDROCHLORIDE
     Dosage: 2.5-0.025 MG
     Dates: start: 20160219
  22. LAMOTRIGINE. [Concomitant]
     Active Substance: LAMOTRIGINE
     Dates: start: 20151203
  23. TOPIRAMATE. [Concomitant]
     Active Substance: TOPIRAMATE
     Dates: start: 20151209

REACTIONS (11)
  - Pain [Unknown]
  - Irritability [Unknown]
  - Rash [Unknown]
  - Affect lability [Unknown]
  - Drug intolerance [Unknown]
  - Respiratory symptom [Unknown]
  - Headache [Unknown]
  - Photophobia [Unknown]
  - Migraine [Unknown]
  - Lethargy [Recovering/Resolving]
  - Vomiting [Unknown]

NARRATIVE: CASE EVENT DATE: 20160613
